FAERS Safety Report 6039297-3 (Version None)
Quarter: 2009Q1

REPORT INFORMATION
  Report Type: 
  Country: None (occurrence: None)
  Receive Date: 20090115
  Receipt Date: 20090108
  Transmission Date: 20090719
  Serious: No
  Sender: FDA-Public Use
  Company Number: US-B.I. PHARMACEUTICALS,INC./RIDGEFIELD-2008-BP-18511BP

PATIENT
  Sex: Male
  Weight: 77 kg

DRUGS (6)
  1. FLOMAX [Suspect]
     Indication: POLLAKIURIA
  2. MINIPRESS [Concomitant]
  3. COREG [Concomitant]
  4. PRILOSEC [Concomitant]
  5. NAMENDA [Concomitant]
  6. METAMUCIL [Concomitant]
     Indication: ABDOMINAL PAIN

REACTIONS (3)
  - PRURITUS [None]
  - RASH [None]
  - RASH ERYTHEMATOUS [None]
